FAERS Safety Report 19169438 (Version 1)
Quarter: 2021Q2

REPORT INFORMATION
  Report Type: Spontaneous
  Country: US (occurrence: US)
  Receive Date: 20210422
  Receipt Date: 20210422
  Transmission Date: 20210717
  Serious: No
  Sender: FDA-Public Use
  Company Number: US-BAYER-2021-128399

PATIENT
  Sex: Female
  Weight: 92.3 kg

DRUGS (2)
  1. ADEMPAS [Suspect]
     Active Substance: RIOCIGUAT
     Dosage: UNK
  2. MACITENTAN [Suspect]
     Active Substance: MACITENTAN
     Indication: PULMONARY ARTERIAL HYPERTENSION
     Dosage: 10 MG, QD
     Route: 048

REACTIONS (5)
  - Joint swelling [None]
  - Product dose omission in error [None]
  - Headache [None]
  - Productive cough [None]
  - Product dose omission issue [None]
